FAERS Safety Report 21011257 (Version 1)
Quarter: 2022Q2

REPORT INFORMATION
  Report Type: Spontaneous
  Country: CN (occurrence: CN)
  Receive Date: 20220627
  Receipt Date: 20220627
  Transmission Date: 20220721
  Serious: Yes (Other)
  Sender: FDA-Public Use
  Company Number: None

PATIENT
  Age: 36 Year
  Sex: Female

DRUGS (2)
  1. MANNITOL [Suspect]
     Active Substance: MANNITOL
     Indication: Gastrointestinal disorder
     Dosage: 250 ML, QD
     Route: 041
     Dates: start: 20220609, end: 20220609
  2. MANNITOL [Suspect]
     Active Substance: MANNITOL
     Indication: Unevaluable therapy

REACTIONS (3)
  - Hypoaesthesia oral [Recovered/Resolved]
  - Dyspnoea [Recovered/Resolved]
  - Hypersensitivity [Recovering/Resolving]

NARRATIVE: CASE EVENT DATE: 20220609
